FAERS Safety Report 25737439 (Version 1)
Quarter: 2025Q3

REPORT INFORMATION
  Report Type: Spontaneous
  Country: US (occurrence: US)
  Receive Date: 20250828
  Receipt Date: 20250828
  Transmission Date: 20251021
  Serious: No
  Sender: BIOMARIN
  Company Number: US-BIOMARINAP-US-2025-168316

PATIENT
  Sex: Male

DRUGS (1)
  1. PALYNZIQ [Suspect]
     Active Substance: PEGVALIASE-PQPZ
     Indication: Product used for unknown indication

REACTIONS (3)
  - Chills [Recovered/Resolved]
  - Asthenia [Recovered/Resolved]
  - Off label use [Unknown]
